FAERS Safety Report 5728089-8 (Version None)
Quarter: 2008Q2

REPORT INFORMATION
  Report Type: 
  Country: None (occurrence: None)
  Receive Date: 20080505
  Receipt Date: 20080428
  Transmission Date: 20081010
  Serious: Yes (Other)
  Sender: FDA-Public Use
  Company Number: HQWYE935416AUG05

PATIENT
  Sex: Female

DRUGS (9)
  1. PREMPRO [Suspect]
     Indication: MENOPAUSE
  2. PROVERA [Suspect]
  3. PROMETRIUM [Suspect]
     Indication: HOT FLUSH
  4. PROMETRIUM [Suspect]
     Indication: MENOPAUSAL SYMPTOMS
  5. ESTRACE [Suspect]
  6. PREMARIN [Suspect]
     Indication: HOT FLUSH
  7. PREMARIN [Suspect]
     Indication: MENOPAUSAL SYMPTOMS
  8. CENESTIN [Suspect]
     Indication: HOT FLUSH
  9. CENESTIN [Suspect]
     Indication: MENOPAUSAL SYMPTOMS

REACTIONS (1)
  - BREAST CANCER METASTATIC [None]
